FAERS Safety Report 24119463 (Version 1)
Quarter: 2024Q3

REPORT INFORMATION
  Report Type: Report from Study
  Country: FR (occurrence: FR)
  Receive Date: 20240722
  Receipt Date: 20240722
  Transmission Date: 20241017
  Serious: Yes (Death)
  Sender: PFIZER
  Company Number: FR-PFIZER INC-PV202400005017

PATIENT
  Age: 8 Year
  Sex: Female
  Weight: 18.3 kg

DRUGS (1)
  1. LORLATINIB [Suspect]
     Active Substance: LORLATINIB
     Indication: Neuroblastoma
     Dosage: 75 MG, 1X/DAY (AT THE SAME HOUR)

REACTIONS (1)
  - Death [Fatal]
